FAERS Safety Report 6615865-2 (Version None)
Quarter: 2010Q1

REPORT INFORMATION
  Report Type: 
  Country: None (occurrence: None)
  Receive Date: 20100305
  Receipt Date: 20100222
  Transmission Date: 20100710
  Serious: Yes (Death)
  Sender: FDA-Public Use
  Company Number: SE-JNJCH-2010004691

PATIENT
  Sex: Female

DRUGS (9)
  1. MAGNECYL [Suspect]
     Indication: ACUTE MYOCARDIAL INFARCTION
     Dosage: TEXT:UNSPECIFIED
     Route: 048
     Dates: start: 20100107, end: 20100107
  2. MAGNECYL [Suspect]
     Indication: ATRIOVENTRICULAR BLOCK
  3. KLEXANE [Suspect]
     Indication: ACUTE MYOCARDIAL INFARCTION
     Dosage: TEXT:100MG ONCE
     Route: 058
     Dates: start: 20100107, end: 20100107
  4. KLEXANE [Suspect]
     Indication: ATRIOVENTRICULAR BLOCK
  5. PLAVIX [Suspect]
     Indication: ACUTE MYOCARDIAL INFARCTION
     Dosage: TEXT:600MG ONCE
     Route: 048
     Dates: start: 20100107, end: 20100107
  6. PLAVIX [Suspect]
     Indication: ATRIOVENTRICULAR BLOCK
  7. METALYSE [Suspect]
     Indication: ACUTE MYOCARDIAL INFARCTION
     Dosage: TEXT:ONCE
     Route: 042
     Dates: start: 20100107, end: 20100107
  8. METALYSE [Suspect]
     Indication: ATRIOVENTRICULAR BLOCK
  9. GLYCERYL TRINITRATE [Concomitant]
     Indication: CHEST PAIN
     Dosage: TEXT:UNSPECIFIED
     Route: 065

REACTIONS (1)
  - CEREBRAL HAEMORRHAGE [None]
